FAERS Safety Report 19480965 (Version 1)
Quarter: 2021Q2

REPORT INFORMATION
  Report Type: Spontaneous
  Country: CA (occurrence: CA)
  Receive Date: 20210630
  Receipt Date: 20210630
  Transmission Date: 20210717
  Serious: Yes (Hospitalization)
  Sender: FDA-Public Use
  Company Number: CA-009507513-2106CAN006780

PATIENT
  Age: 58 Year
  Sex: Female
  Weight: 76 kg

DRUGS (7)
  1. SYMBICORT [Concomitant]
     Active Substance: BUDESONIDE\FORMOTEROL FUMARATE DIHYDRATE
     Route: 065
  2. GRAVOL [Concomitant]
     Active Substance: DIMENHYDRINATE
  3. IMOVANE [Concomitant]
     Active Substance: ZOPICLONE
  4. SYNTHROID [Concomitant]
     Active Substance: LEVOTHYROXINE SODIUM
     Dosage: DOSAGE FORM: NOT SPECIFIED
  5. PANTOLOC [Concomitant]
     Active Substance: PANTOPRAZOLE SODIUM
     Dosage: DOSAGE FORM:: TABLET (ENTERICCODED)
  6. LAX?A?DAY [Concomitant]
     Active Substance: POLYETHYLENE GLYCOL 3350
     Dosage: DOSAGE FORM: POWDER FOR SOLUTION ORAL.
  7. TEMODAL [Suspect]
     Active Substance: TEMOZOLOMIDE
     Indication: ANAPLASTIC ASTROCYTOMA
     Dosage: 1 EVERY 1 DAYS, QD

REACTIONS (1)
  - Febrile neutropenia [Recovered/Resolved]
